FAERS Safety Report 17652984 (Version 1)
Quarter: 2020Q2

REPORT INFORMATION
  Report Type: Spontaneous
  Country: FR (occurrence: FR)
  Receive Date: 20200409
  Receipt Date: 20200409
  Transmission Date: 20200713
  Serious: Yes (Other)
  Sender: FDA-Public Use
  Company Number: FR-AUROBINDO-AUR-APL-2020-017308

PATIENT
  Sex: Male
  Weight: 103 kg

DRUGS (5)
  1. CARBOPLATIN. [Suspect]
     Active Substance: CARBOPLATIN
     Indication: METASTATIC BRONCHIAL CARCINOMA
     Dosage: 575 MILLIGRAM
     Route: 042
     Dates: start: 20200122
  2. CARBOPLATIN. [Suspect]
     Active Substance: CARBOPLATIN
     Dosage: 613 MILLIGRAM
     Route: 042
     Dates: start: 20200212
  3. ATEZOLIZUMAB. [Suspect]
     Active Substance: ATEZOLIZUMAB
     Indication: METASTATIC BRONCHIAL CARCINOMA
     Dosage: 1200 MILLIGRAM
     Route: 041
     Dates: start: 20200212
  4. ETOPOSIDE. [Suspect]
     Active Substance: ETOPOSIDE
     Indication: METASTATIC BRONCHIAL CARCINOMA
     Dosage: 200 MILLIGRAM
     Route: 042
     Dates: start: 20200122
  5. ETOPOSIDE. [Suspect]
     Active Substance: ETOPOSIDE
     Dosage: 600 MILLIGRAM
     Route: 042
     Dates: start: 20200212

REACTIONS (1)
  - Bone marrow failure [Unknown]
